FAERS Safety Report 6173786-6 (Version None)
Quarter: 2009Q2

REPORT INFORMATION
  Report Type: 
  Country: None (occurrence: None)
  Receive Date: 20090430
  Receipt Date: 20090422
  Transmission Date: 20091009
  Serious: Yes (Hospitalization, Other)
  Sender: FDA-Public Use
  Company Number: PHEH2009US04065

PATIENT
  Sex: Female
  Weight: 92.517 kg

DRUGS (6)
  1. DIOVAN HCT [Suspect]
     Dosage: 160 VAL/ 25 HCTZ, QD
     Route: 048
     Dates: end: 20090401
  2. SYNTHROID [Concomitant]
  3. CARDIZEM [Concomitant]
  4. CRESTOR [Concomitant]
  5. DILTIAZEM [Concomitant]
  6. LEXAPRO [Concomitant]
     Dosage: 10 MG, UNK

REACTIONS (3)
  - CATHETERISATION CARDIAC [None]
  - CHEST PAIN [None]
  - HYPERNATRAEMIA [None]
